FAERS Safety Report 24178120 (Version 2)
Quarter: 2024Q3

REPORT INFORMATION
  Report Type: Spontaneous
  Country: RU (occurrence: RU)
  Receive Date: 20240806
  Receipt Date: 20240827
  Transmission Date: 20241017
  Serious: Yes (Other)
  Sender: TAKEDA
  Company Number: RU-TAKEDA-2024TUS078510

PATIENT
  Age: 84 Year
  Sex: Female
  Weight: 71 kg

DRUGS (1)
  1. ENTYVIO [Suspect]
     Active Substance: VEDOLIZUMAB
     Indication: Crohn^s disease
     Dosage: 300 MILLIGRAM
     Route: 042
     Dates: start: 20220419, end: 20240624

REACTIONS (1)
  - Drug ineffective [Unknown]
